FAERS Safety Report 6499110-7 (Version None)
Quarter: 2009Q4

REPORT INFORMATION
  Report Type: 
  Country: None (occurrence: None)
  Receive Date: 20091215
  Receipt Date: 20091203
  Transmission Date: 20100525
  Serious: Yes (Disabling)
  Sender: FDA-Public Use
  Company Number: GB-ELI_LILLY_AND_COMPANY-GB200912001210

PATIENT
  Age: 66 Year
  Sex: Female
  Weight: 99 kg

DRUGS (6)
  1. BYETTA [Suspect]
     Dates: start: 20070810, end: 20080502
  2. ASPIRIN [Concomitant]
  3. ATORVASTATIN CALCIUM [Concomitant]
     Dosage: 20 MG, UNK
  4. ATORVASTATIN CALCIUM [Concomitant]
     Dosage: 40 MG, UNK
  5. GLICLAZIDE [Concomitant]
  6. LOSARTAN [Concomitant]

REACTIONS (4)
  - ABDOMINAL PAIN [None]
  - DIARRHOEA [None]
  - PERIPHERAL COLDNESS [None]
  - SARCOIDOSIS [None]
